FAERS Safety Report 20865434 (Version 1)
Quarter: 2022Q2

REPORT INFORMATION
  Report Type: Report from Study
  Country: CA (occurrence: CA)
  Receive Date: 20220524
  Receipt Date: 20220524
  Transmission Date: 20220721
  Serious: Yes (Other)
  Sender: FDA-Public Use
  Company Number: CA-JNJFOC-20220415370

PATIENT
  Age: 65 Year
  Sex: Male
  Weight: 81 kg

DRUGS (1)
  1. REMICADE [Suspect]
     Active Substance: INFLIXIMAB
     Indication: Crohn^s disease
     Dosage: EARLIER THERAPY START DATE: 2018. THE PATIENT WAS RECEIVING MORE THAN 10 MG / KG SINCE 07-APR-2022
     Route: 042
     Dates: start: 20170504

REACTIONS (6)
  - Intestinal polyp [Unknown]
  - Diverticulum intestinal [Unknown]
  - Intestinal stenosis [Not Recovered/Not Resolved]
  - Incorrect drug administration rate [Unknown]
  - Off label use [Unknown]
  - Incorrect dose administered [Unknown]

NARRATIVE: CASE EVENT DATE: 20220407
